FAERS Safety Report 23239941 (Version 1)
Quarter: 2023Q4

REPORT INFORMATION
  Report Type: Spontaneous
  Country: US (occurrence: None)
  Receive Date: 20231128
  Receipt Date: 20231128
  Transmission Date: 20240109
  Serious: Yes (Life-Threatening, Hospitalization, Disabling, Other)
  Sender: FDA-Public Use
  Company Number: None

PATIENT
  Age: 37 Year
  Sex: Male
  Weight: 108.86 kg

DRUGS (2)
  1. RISPERIDONE [Suspect]
     Active Substance: RISPERIDONE
     Dates: start: 20200202, end: 20230202
  2. SEROQUEL [Suspect]
     Active Substance: QUETIAPINE FUMARATE

REACTIONS (5)
  - Gynaecomastia [None]
  - Suicide attempt [None]
  - Incorrect dose administered [None]
  - Myocardial infarction [None]
  - Erectile dysfunction [None]

NARRATIVE: CASE EVENT DATE: 20230203
